FAERS Safety Report 12273520 (Version 1)
Quarter: 2016Q2

REPORT INFORMATION
  Report Type: Spontaneous
  Country: US (occurrence: US)
  Receive Date: 20160415
  Receipt Date: 20160415
  Transmission Date: 20160815
  Serious: No
  Sender: FDA-Public Use
  Company Number: US-GREER LABORATORIES, INC.-1050613

PATIENT
  Age: 13 Year
  Sex: Female
  Weight: 68.18 kg

DRUGS (27)
  1. POLLENS - GRASSES, BAHIA GRASS PASPALUM NOTATUM [Suspect]
     Active Substance: PASPALUM NOTATUM POLLEN
     Indication: RHINITIS ALLERGIC
     Route: 023
  2. POLLENS - WEEDS, DOCK/SORREL MIX [Suspect]
     Active Substance: RUMEX ACETOSELLA POLLEN\RUMEX CRISPUS POLLEN
     Route: 023
  3. EASTERN WHITE PINE POLLEN [Suspect]
     Active Substance: PINUS STROBUS POLLEN
     Route: 023
  4. POLLENS - TREES, SYCAMORE, AMERICAN (EASTERN) PLATANUS OCCIDENTALLIS [Suspect]
     Active Substance: PLATANUS OCCIDENTALIS POLLEN
     Route: 023
  5. MOLDS, RUSTS AND SMUTS, EPICOCCUM NIGRUM [Suspect]
     Active Substance: EPICOCCUM NIGRUM
     Route: 023
  6. STANDARDIZED BERMUDA GRASS POLLEN [Suspect]
     Active Substance: CYNODON DACTYLON POLLEN
     Route: 023
  7. POLLENS - WEEDS AND GARDEN PLANTS, PLANTAIN, ENGLISH PLANTAGO LANCEOLATA [Suspect]
     Active Substance: PLANTAGO LANCEOLATA POLLEN
     Route: 023
  8. MOLDS, RUSTS AND SMUTS, CEPHALOSPORIUM ACREMONIUM [Suspect]
     Active Substance: ACREMONIUM STRICTUM
     Route: 023
  9. ALLERGENIC EXTRACT- MITE, DERMATOPHAGOIDES PTERONYSSINUS [Suspect]
     Active Substance: DERMATOPHAGOIDES PTERONYSSINUS
     Route: 023
  10. ANIMAL ALLERGENS, DOG EPITHELIA, CANIS FAMILIARIS [Suspect]
     Active Substance: CANIS LUPUS FAMILIARIS SKIN
     Route: 023
  11. POLLENS - WEEDS AND GARDEN PLANTS, SHORT RAGWEED, AMBROSIA ARTEMISIIFOLIA [Suspect]
     Active Substance: AMBROSIA ARTEMISIIFOLIA POLLEN
     Route: 023
  12. POLLENS - TREES, HICKORY, SHAGBARK CARYA OVATA [Suspect]
     Active Substance: CARYA OVATA POLLEN
     Route: 023
  13. MOLDS, RUSTS AND SMUTS, GS MOLD MIX #1 [Suspect]
     Active Substance: ALTERNARIA ALTERNATA\ ASPERGILLUS NIGER VAR. NIGER\COCHLIOBOLUS SATIVUS\CLADOSPORIUM SPHAEROSPERMUM\PENICILLIUM CHRYSOGENUM VAR. CHRYSOGENUM
     Route: 023
  14. ANIMAL ALLERGENS, FEATHER MIX [Suspect]
     Active Substance: ANAS PLATYRHYNCHOS FEATHER\ANSER ANSER FEATHER\GALLUS GALLUS FEATHER
     Route: 023
  15. POLLENS - GRASSES, JOHNSON GRASS SORGHUM HALEPENSE [Suspect]
     Active Substance: SORGHUM HALEPENSE POLLEN
     Route: 023
  16. POLLENS - WEEDS AND GARDEN PLANTS, GS 3 WEED MIX [Suspect]
     Active Substance: AMARANTHUS RETROFLEXUS POLLEN\CHENOPODIUM ALBUM POLLEN\XANTHIUM STRUMARIUM POLLEN
     Route: 023
  17. POLLENS - TREES, CEDAR, MOUNTAIN JUNIPERUS ASHEI [Suspect]
     Active Substance: JUNIPERUS ASHEI POLLEN
     Route: 023
  18. POLLENS - TREES, WILLOW, BLACK SALIX NIGRA [Suspect]
     Active Substance: SALIX NIGRA POLLEN
     Route: 023
  19. ALLERGENIC EXTRACT- MITE, DERMATOPHAGOIDES FARINAE [Suspect]
     Active Substance: DERMATOPHAGOIDES FARINAE
     Route: 023
  20. STANDARDIZED GRASS POLLEN, TIMOTHY [Suspect]
     Active Substance: PHLEUM PRATENSE POLLEN
     Route: 023
  21. POLLENS - TREES, OAK, RED QUERCUS RUBRA [Suspect]
     Active Substance: QUERCUS RUBRA POLLEN
     Route: 023
  22. STANDARDIZED CAT HAIR [Suspect]
     Active Substance: FELIS CATUS HAIR
     Route: 023
  23. POLLENS - TREES, GS EASTERN 7 TREE MIX [Suspect]
     Active Substance: BETULA NIGRA POLLEN\CARYA OVATA POLLEN\FAGUS GRANDIFOLIA\FRAXINUS AMERICANA POLLEN\ POPULUS DELTOIDES POLLEN\QUERCUS RUBRA POLLEN\ULMUS AMERICANA POLLEN
     Route: 023
  24. MOLDS, RUSTS AND SMUTS, GS MOLD MIX #2 [Suspect]
     Active Substance: AUREOBASIDIUM PULLULANS VAR. PULLUTANS\COCHLIOBOLUS SPICIFER\GIBBERELLA FUJIKUROI\MUCOR PLUMBEUS\RHIZOPUS STOLONIFER
     Route: 023
  25. INSECTS (WHOLE BODY) COCKROACH, AMERICAN PERIPLANETA AMERICANA [Suspect]
     Active Substance: PERIPLANETA AMERICANA
     Route: 023
  26. BOX ELDER POLLEN [Suspect]
     Active Substance: ACER NEGUNDO POLLEN
     Route: 023
  27. MOLDS, RUSTS AND SMUTS, STEMPHYLIUM SOLANI [Suspect]
     Active Substance: STEMPHYLIUM SOLANI
     Route: 023

REACTIONS (3)
  - Cough [Recovered/Resolved]
  - Ear discomfort [Recovered/Resolved]
  - Rash macular [Recovered/Resolved]

NARRATIVE: CASE EVENT DATE: 20160211
